FAERS Safety Report 4454578-2 (Version None)
Quarter: 2004Q3

REPORT INFORMATION
  Report Type: 
  Country: None (occurrence: None)
  Receive Date: 20040920
  Receipt Date: 20040920
  Transmission Date: 20050211
  Serious: Yes (Life-Threatening)
  Sender: FDA-Public Use
  Company Number: None

PATIENT

DRUGS (1)
  1. PRILOSEC [Suspect]
     Dosage: 1 TABLET PER DAY
     Dates: start: 20030402, end: 20030502

REACTIONS (1)
  - HEART RATE IRREGULAR [None]
